FAERS Safety Report 8365144-0 (Version None)
Quarter: 2012Q2

REPORT INFORMATION
  Report Type: 
  Country: None (occurrence: None)
  Receive Date: 20120516
  Receipt Date: 20120501
  Transmission Date: 20120825
  Serious: Yes (Death, Other)
  Sender: FDA-Public Use
  Company Number: DK-JNJFOC-20120212932

PATIENT
  Sex: Female

DRUGS (10)
  1. METHOTREXATE [Suspect]
     Route: 050
  2. REMICADE [Suspect]
     Indication: RHEUMATOID ARTHRITIS
     Route: 042
     Dates: start: 20071108, end: 20071108
  3. METHOTREXATE [Suspect]
     Dosage: DOSE VARIED BETWEEN 25 MG AND 10 MG PER WEEK DEPENDING ON DISEASE ACTIVITY AND TOLERANCE
     Route: 050
  4. METHOTREXATE [Suspect]
     Route: 048
     Dates: start: 20070313, end: 20070521
  5. METHOTREXATE [Suspect]
     Route: 050
  6. PREDNISOLONE [Concomitant]
     Dates: start: 20051213
  7. REMICADE [Suspect]
     Route: 042
     Dates: start: 20021126
  8. METHOTREXATE [Suspect]
     Route: 048
     Dates: start: 20070604, end: 20071108
  9. METHOTREXATE [Suspect]
     Indication: RHEUMATOID ARTHRITIS
     Route: 048
     Dates: start: 20031014, end: 20060608
  10. METHOTREXATE [Suspect]
     Route: 050
     Dates: start: 20071127

REACTIONS (2)
  - LUNG ADENOCARCINOMA [None]
  - THYROID CANCER [None]
